FAERS Safety Report 25247957 (Version 2)
Quarter: 2025Q3

REPORT INFORMATION
  Report Type: Spontaneous
  Country: US (occurrence: US)
  Receive Date: 20250429
  Receipt Date: 20250714
  Transmission Date: 20251021
  Serious: No
  Sender: AMGEN
  Company Number: US-002147023-NVSC2022US097038

PATIENT
  Age: 45 Year
  Sex: Female

DRUGS (15)
  1. ERENUMAB [Suspect]
     Active Substance: ERENUMAB
     Indication: Central pain syndrome
     Route: 065
  2. TRILEPTAL [Suspect]
     Active Substance: OXCARBAZEPINE
     Indication: Central pain syndrome
     Route: 065
  3. HYDROXYZINE [Suspect]
     Active Substance: HYDROXYZINE HYDROCHLORIDE
     Indication: Central pain syndrome
     Route: 065
  4. INDOCIN [Suspect]
     Active Substance: INDOMETHACIN
     Indication: Central pain syndrome
     Route: 065
  5. FLEXERIL [Suspect]
     Active Substance: CYCLOBENZAPRINE HYDROCHLORIDE
     Indication: Central pain syndrome
     Route: 065
  6. LAMICTAL [Suspect]
     Active Substance: LAMOTRIGINE
     Indication: Central pain syndrome
     Route: 065
  7. NEURONTIN [Suspect]
     Active Substance: GABAPENTIN
     Indication: Central pain syndrome
     Route: 065
  8. BOTOX [Suspect]
     Active Substance: ONABOTULINUMTOXINA
     Indication: Central pain syndrome
     Route: 065
  9. LYRICA [Suspect]
     Active Substance: PREGABALIN
     Indication: Central pain syndrome
     Route: 065
  10. INDERAL [Suspect]
     Active Substance: PROPRANOLOL HYDROCHLORIDE
     Indication: Central pain syndrome
     Route: 065
  11. SEROQUEL XR [Suspect]
     Active Substance: QUETIAPINE FUMARATE
     Indication: Central pain syndrome
     Route: 065
  12. CANNABIS SATIVA SUBSP. INDICA TOP [Suspect]
     Active Substance: CANNABIS SATIVA SUBSP. INDICA TOP
     Indication: Central pain syndrome
     Route: 065
  13. UBROGEPANT [Suspect]
     Active Substance: UBROGEPANT
     Indication: Central pain syndrome
     Route: 065
  14. BACLOFEN [Suspect]
     Active Substance: BACLOFEN
     Indication: Central pain syndrome
     Route: 065
  15. BUSPAR [Suspect]
     Active Substance: BUSPIRONE HYDROCHLORIDE
     Indication: Central pain syndrome
     Route: 065

REACTIONS (1)
  - Drug ineffective for unapproved indication [Unknown]
